FAERS Safety Report 8860016 (Version 2)
Quarter: 2013Q1

REPORT INFORMATION
  Report Type: Spontaneous
  Country: US (occurrence: US)
  Receive Date: 20121025
  Receipt Date: 20130110
  Transmission Date: 20140127
  Serious: Yes (Hospitalization)
  Sender: FDA-Public Use
  Company Number: US-BAYER-2012-109971

PATIENT
  Age: 51 Year
  Sex: Female

DRUGS (4)
  1. YAZ [Suspect]
  2. FISH OIL [Concomitant]
  3. MIRALAX [Concomitant]
  4. ZANTAC [Concomitant]

REACTIONS (2)
  - Pulmonary embolism [None]
  - Deep vein thrombosis [None]
